FAERS Safety Report 7427820-3 (Version None)
Quarter: 2011Q2

REPORT INFORMATION
  Report Type: 
  Country: None (occurrence: None)
  Receive Date: 20110421
  Receipt Date: 20101109
  Transmission Date: 20111010
  Serious: Yes (Hospitalization, Other)
  Sender: FDA-Public Use
  Company Number: US-BAYER-201029180NA

PATIENT
  Age: 34 Year
  Sex: Female
  Weight: 84 kg

DRUGS (13)
  1. ZOMIG [Concomitant]
     Dosage: 5 MG, UNK
  2. PROMETHAZINE [Concomitant]
     Dosage: 12.5 MG, UNK
  3. YASMIN [Suspect]
     Indication: CONTRACEPTION
     Route: 048
     Dates: start: 20030501, end: 20070701
  4. ASCORBIC ACID [Concomitant]
  5. SIBUTRAMINE HYDROCHLORIDE MONOHYDRATE [Concomitant]
     Dosage: 75.5 MG, UNK
  6. PHENTERMINE [Concomitant]
     Dosage: 37.5 MG, QD
     Route: 048
  7. THYROID TAB [Concomitant]
     Dosage: 60 MG, UNK
  8. SYNTHROID [Concomitant]
     Indication: HYPOTHYROIDISM
  9. LOVENOX [Concomitant]
  10. ZOMIG [Concomitant]
     Dosage: 4 MG, UNK
  11. PREDNISONE [Concomitant]
     Dosage: 10 MG, UNK
  12. MIGRAINE MEDICATIONS [Concomitant]
     Indication: MIGRAINE
  13. ADIPEX [Concomitant]

REACTIONS (5)
  - INTRACRANIAL VENOUS SINUS THROMBOSIS [None]
  - HEADACHE [None]
  - CEREBROVASCULAR ACCIDENT [None]
  - MENTAL STATUS CHANGES [None]
  - VOMITING [None]
